FAERS Safety Report 15241487 (Version 1)
Quarter: 2018Q3

REPORT INFORMATION
  Report Type: Spontaneous
  Country: US (occurrence: US)
  Receive Date: 20180712
  Receipt Date: 20180712
  Transmission Date: 20181010
  Serious: Yes (Life-Threatening, Hospitalization)
  Sender: FDA-Public Use
  Company Number: None

PATIENT
  Age: 60 Year
  Sex: Female
  Weight: 79.83 kg

DRUGS (8)
  1. HAWTHORN BERRY [Concomitant]
  2. GLEEVEC [Concomitant]
     Active Substance: IMATINIB MESYLATE
  3. HYDROCHLORTHIAZIDE [Concomitant]
     Active Substance: HYDROCHLOROTHIAZIDE
  4. MAGNESIUM [Concomitant]
     Active Substance: MAGNESIUM
  5. LISINOPRIL. [Suspect]
     Active Substance: LISINOPRIL
     Indication: BLOOD PRESSURE INCREASED
     Dosage: ?          QUANTITY:1 PILL A DAY;?
     Route: 048
     Dates: start: 2018, end: 20180525
  6. AMLODIPINE [Concomitant]
     Active Substance: AMLODIPINE BESYLATE
  7. FLUTICASONE. [Concomitant]
     Active Substance: FLUTICASONE
  8. VITAMIN B12 [Concomitant]
     Active Substance: CYANOCOBALAMIN

REACTIONS (3)
  - Hypoaesthesia [None]
  - Feeling abnormal [None]
  - Pharyngeal oedema [None]

NARRATIVE: CASE EVENT DATE: 20180524
